FAERS Safety Report 4330672-1 (Version None)
Quarter: 2004Q2

REPORT INFORMATION
  Report Type: 
  Country: None (occurrence: None)
  Receive Date: 20040402
  Receipt Date: 20040205
  Transmission Date: 20050107
  Serious: Yes (Life-Threatening, Hospitalization)
  Sender: FDA-Public Use
  Company Number: DE-GLAXOSMITHKLINE-D0043024A

PATIENT
  Age: 67 Year
  Sex: Female
  Weight: 67 kg

DRUGS (3)
  1. IMIGRAN [Suspect]
     Indication: MIGRAINE
     Route: 065
     Dates: start: 19940101, end: 20040101
  2. NEBILET [Concomitant]
     Indication: HYPERTENSION
     Dosage: 5MG PER DAY
     Route: 048
  3. LOCOL [Concomitant]
     Indication: HYPERLIPIDAEMIA
     Dosage: 40MG PER DAY
     Route: 048
     Dates: start: 20010101

REACTIONS (13)
  - ACUTE ABDOMEN [None]
  - C-REACTIVE PROTEIN INCREASED [None]
  - DRUG DEPENDENCE [None]
  - HEADACHE [None]
  - KIDNEY INFECTION [None]
  - NAUSEA [None]
  - PAIN [None]
  - RENAL HAEMORRHAGE [None]
  - RENAL INFARCT [None]
  - SEPSIS [None]
  - STOOLS WATERY [None]
  - VOMITING [None]
  - WHITE BLOOD CELL COUNT INCREASED [None]
